FAERS Safety Report 16712800 (Version 3)
Quarter: 2019Q4

REPORT INFORMATION
  Report Type: Spontaneous
  Country: DE (occurrence: DE)
  Receive Date: 20190817
  Receipt Date: 20191205
  Transmission Date: 20200122
  Serious: Yes (Death, Life-Threatening, Hospitalization, Other)
  Sender: FDA-Public Use
  Company Number: DE-AUROBINDO-AUR-APL-2019-053340

PATIENT
  Sex: Male

DRUGS (6)
  1. LEVETIRACETAM. [Suspect]
     Active Substance: LEVETIRACETAM
     Indication: PROPHYLAXIS
     Dosage: 1000 DOSAGE FORM, ONCE A DAY
     Route: 065
     Dates: start: 20190618
  2. AZITHROMYCIN ANHYDROUS. [Suspect]
     Active Substance: AZITHROMYCIN ANHYDROUS
     Indication: MALIGNANT MELANOMA
     Dosage: UNK
     Route: 065
  3. RANITIDINE. [Concomitant]
     Active Substance: RANITIDINE
     Indication: CEREBRAL HAEMORRHAGE
     Dosage: 300 MILLIGRAM, ONCE A DAY
     Route: 065
     Dates: start: 20190618
  4. IPILIMUMAB [Suspect]
     Active Substance: IPILIMUMAB
     Indication: MALIGNANT MELANOMA
     Dosage: 3 MILLIGRAM/KILOGRAM, CYCLICAL ( Q3CYCLES)
     Route: 042
     Dates: start: 20190411, end: 20190522
  5. NIVOLUMAB [Suspect]
     Active Substance: NIVOLUMAB
     Indication: MALIGNANT MELANOMA
     Dosage: 1 MILLIGRAM/KILOGRAM, CYCLICAL (Q3CYCLES)
     Route: 042
     Dates: start: 20190411, end: 20190522
  6. NOVALGIN (METAMIZOLE SODIUM) [Suspect]
     Active Substance: METAMIZOLE SODIUM
     Indication: PRODUCT USED FOR UNKNOWN INDICATION
     Dosage: UNK
     Route: 065

REACTIONS (9)
  - Iris adhesions [Unknown]
  - Sepsis [Unknown]
  - Multiple allergies [Unknown]
  - Pneumonia [Unknown]
  - Brain abscess [Unknown]
  - Rash [Unknown]
  - Toxic epidermal necrolysis [Fatal]
  - Pancytopenia [Unknown]
  - Autoimmune hepatitis [Unknown]

NARRATIVE: CASE EVENT DATE: 20190529
